FAERS Safety Report 5627411-0 (Version None)
Quarter: 2008Q1

REPORT INFORMATION
  Report Type: 
  Country: None (occurrence: None)
  Receive Date: 20080214
  Receipt Date: 20080214
  Transmission Date: 20080703
  Serious: Yes (Death)
  Sender: FDA-Public Use
  Company Number: None

PATIENT
  Age: 50 Year
  Sex: Female
  Weight: 60.782 kg

DRUGS (17)
  1. AMBIEN [Suspect]
     Indication: INSOMNIA
     Dosage: 10 MG  DAILY AT BEDTIME  PO
     Route: 048
     Dates: start: 20060524, end: 20060526
  2. GEODON [Suspect]
     Indication: AGITATION
     Dosage: 100 MG TWICE PER DAY PO
     Route: 048
     Dates: start: 20060331, end: 20060526
  3. GEODON [Suspect]
     Indication: PSYCHOTIC DISORDER
     Dosage: 100 MG TWICE PER DAY PO
     Route: 048
     Dates: start: 20060331, end: 20060526
  4. PREVACID [Concomitant]
  5. FERROUS SULFATE TAB [Concomitant]
  6. HALOPERIDOL [Concomitant]
  7. LORAZEPAM [Concomitant]
  8. DETROL LA [Concomitant]
  9. CLONAZEPAM [Concomitant]
  10. TRILEPTAL [Concomitant]
  11. TYLENOL (CAPLET) [Concomitant]
  12. CITRUCEL [Concomitant]
  13. DOCUSIL [Concomitant]
  14. BENZTROPINE MESYLATE [Concomitant]
  15. ANALGESIC CREAM [Concomitant]
  16. PROMETHAZINE [Concomitant]
  17. COGENTIN [Concomitant]

REACTIONS (4)
  - ABDOMINAL PAIN UPPER [None]
  - ARTERIOSCLEROSIS CORONARY ARTERY [None]
  - PYREXIA [None]
  - SOMNOLENCE [None]
